FAERS Safety Report 17527720 (Version 3)
Quarter: 2020Q2

REPORT INFORMATION
  Report Type: Report from Study
  Country: GB (occurrence: GB)
  Receive Date: 20200311
  Receipt Date: 20200525
  Transmission Date: 20200713
  Serious: Yes (Other)
  Sender: FDA-Public Use
  Company Number: NVSC2020GB067402

PATIENT
  Sex: Female

DRUGS (1)
  1. COSENTYX [Suspect]
     Active Substance: SECUKINUMAB
     Indication: PSORIASIS
     Dosage: 300 MG, UNKNOWN
     Route: 058
     Dates: start: 2018

REACTIONS (5)
  - Nasopharyngitis [Recovered/Resolved with Sequelae]
  - Lower respiratory tract infection [Recovered/Resolved with Sequelae]
  - Ill-defined disorder [Recovered/Resolved with Sequelae]
  - Allergy to animal [Recovered/Resolved with Sequelae]
  - Product dose omission [Recovered/Resolved with Sequelae]

NARRATIVE: CASE EVENT DATE: 2019
